FAERS Safety Report 4849570-X (Version None)
Quarter: 2005Q4

REPORT INFORMATION
  Report Type: 
  Country: None (occurrence: None)
  Receive Date: 20051207
  Receipt Date: 20051124
  Transmission Date: 20060501
  Serious: Yes (Death)
  Sender: FDA-Public Use
  Company Number: 2005106616

PATIENT
  Age: 97 Year
  Sex: Male

DRUGS (4)
  1. FLUCONAZOLE [Suspect]
     Indication: ILL-DEFINED DISORDER
     Dosage: 100 MG (1 IN 1 D), INTRAVENOUS
     Route: 042
     Dates: start: 20050609, end: 20050614
  2. AMOXICILLIN [Suspect]
     Indication: ILL-DEFINED DISORDER
     Dosage: 3 GRAM (1 GRAM, 3 IN 1 D), INTRAVENOUS
     Route: 042
     Dates: start: 20050609, end: 20050614
  3. CLAVULANIC ACID (CLAVULANIC ACID) [Suspect]
     Indication: ILL-DEFINED DISORDER
     Dosage: 3 GRAM ( 1 GRAM, 3 IN 1 D), INTRAVENOUS
     Route: 042
     Dates: start: 20050609, end: 20050614
  4. CIPROFLOXACIN [Suspect]
     Indication: ILL-DEFINED DISORDER
     Dosage: 400 MG (2 IN 1 D)
     Dates: start: 20050605, end: 20050614

REACTIONS (1)
  - HAEMOLYTIC ANAEMIA [None]
